FAERS Safety Report 10041533 (Version 2)
Quarter: 2014Q2

REPORT INFORMATION
  Report Type: Spontaneous
  Country: US (occurrence: US)
  Receive Date: 20140327
  Receipt Date: 20140424
  Transmission Date: 20141212
  Serious: No
  Sender: FDA-Public Use
  Company Number: US-009507513-1403USA012538

PATIENT
  Age: 30 Year
  Sex: Female
  Weight: 49.89 kg

DRUGS (3)
  1. DULERA [Suspect]
     Indication: ASTHMA
     Dosage: TOTAL DAILY DOSE: 2 PUFFS
     Route: 055
     Dates: start: 20140203, end: 20140222
  2. PROVENTIL [Concomitant]
     Indication: ASTHMA
     Dosage: 2-6 PUFFS
     Route: 055
  3. CETRIZINE [Suspect]
     Indication: HYPERSENSITIVITY
     Dosage: 10 MG, QD
     Route: 048

REACTIONS (4)
  - Parosmia [Recovered/Resolved]
  - Dysgeusia [Unknown]
  - Product quality issue [Unknown]
  - Dysphonia [Recovered/Resolved]
